FAERS Safety Report 19424796 (Version 1)
Quarter: 2021Q2

REPORT INFORMATION
  Report Type: Spontaneous
  Country: US (occurrence: US)
  Receive Date: 20210617
  Receipt Date: 20210617
  Transmission Date: 20210717
  Serious: No
  Sender: FDA-Public Use
  Company Number: US-009507513-2106USA001005

PATIENT
  Age: 26 Year
  Sex: Female

DRUGS (14)
  1. CEFEPIME [Concomitant]
     Active Substance: CEFEPIME HYDROCHLORIDE
     Indication: EVIDENCE BASED TREATMENT
     Dosage: 2GM IV EVERY 8 H
     Route: 042
  2. VANCOMYCIN [Concomitant]
     Active Substance: VANCOMYCIN
     Indication: EVIDENCE BASED TREATMENT
     Dosage: 1500 MILLIGRAM, EVERY 8 H
     Route: 042
  3. VANCOMYCIN [Concomitant]
     Active Substance: VANCOMYCIN
     Indication: MYCOBACTERIUM FORTUITUM INFECTION
     Dosage: 1250 MG IV EVERY 8 H
     Route: 042
  4. USTEKINUMAB [Concomitant]
     Active Substance: USTEKINUMAB
     Indication: CROHN^S DISEASE
  5. MEROPENEM. [Concomitant]
     Active Substance: MEROPENEM
     Indication: MYCOBACTERIUM FORTUITUM INFECTION
     Dosage: 1000 MG IV EVERY 8 H
     Route: 042
  6. PREDNISONE. [Concomitant]
     Active Substance: PREDNISONE
     Indication: CROHN^S DISEASE
  7. CEFEPIME [Concomitant]
     Active Substance: CEFEPIME HYDROCHLORIDE
     Indication: MYCOBACTERIUM FORTUITUM INFECTION
  8. METRONIDAZOLE. [Concomitant]
     Active Substance: METRONIDAZOLE
     Indication: EVIDENCE BASED TREATMENT
     Dosage: 500 MG IV EVERY 8 H
     Route: 042
  9. METRONIDAZOLE. [Concomitant]
     Active Substance: METRONIDAZOLE
     Indication: MYCOBACTERIUM FORTUITUM INFECTION
  10. FLUCONAZOLE. [Concomitant]
     Active Substance: FLUCONAZOLE
     Indication: MYCOBACTERIUM FORTUITUM INFECTION
     Dosage: 400 MG IV DAILY
     Route: 042
  11. PRIMAXIN IV [Suspect]
     Active Substance: CILASTATIN SODIUM\IMIPENEM
     Dosage: 1000 MG IV EVERY 8 H
     Route: 042
  12. AMIKACIN. [Concomitant]
     Active Substance: AMIKACIN
     Indication: MYCOBACTERIUM FORTUITUM INFECTION
     Dosage: 1250 MG IV DAILY
     Route: 042
  13. SIVEXTRO [Suspect]
     Active Substance: TEDIZOLID PHOSPHATE
     Indication: MYCOBACTERIUM FORTUITUM INFECTION
     Dosage: 200 MG ORALLY DAILY
     Route: 048
  14. PRIMAXIN IV [Suspect]
     Active Substance: CILASTATIN SODIUM\IMIPENEM
     Indication: MYCOBACTERIUM FORTUITUM INFECTION
     Dosage: 500 MG IV EVERY 6 H
     Route: 042

REACTIONS (1)
  - Product use in unapproved indication [Unknown]
